FAERS Safety Report 10899254 (Version 1)
Quarter: 2015Q1

REPORT INFORMATION
  Report Type: Spontaneous
  Country: FR (occurrence: FR)
  Receive Date: 20150309
  Receipt Date: 20150309
  Transmission Date: 20150721
  Serious: Yes (Hospitalization)
  Sender: FDA-Public Use
  Company Number: FR-PFIZER INC-2015079938

PATIENT
  Age: 77 Year
  Sex: Female

DRUGS (4)
  1. ACLASTA [Concomitant]
     Active Substance: ZOLEDRONIC ACID
     Indication: OSTEOPOROSIS
     Dosage: 5 MG, SINGLE
     Route: 042
     Dates: start: 20130624, end: 20130624
  2. ARTOTEC [Suspect]
     Active Substance: DICLOFENAC SODIUM\MISOPROSTOL
     Indication: OSTEOARTHRITIS
     Dosage: [DICLOFENAC SODIUM 75 MG/MGMISOPROSTOL 0.2 MG], 2 DF, 1X/DAY
     Route: 048
     Dates: end: 20150105
  3. EFFEXOR [Suspect]
     Active Substance: VENLAFAXINE HYDROCHLORIDE
     Indication: DEPRESSION
     Dosage: 75 MG, 1X/DAY
     Route: 048
     Dates: end: 20150105
  4. BETASERC [Suspect]
     Active Substance: BETAHISTINE
     Indication: VERTIGO
     Dosage: 48 MG, 1X/DAY
     Route: 048
     Dates: end: 20150105

REACTIONS (5)
  - Confusional state [Recovered/Resolved]
  - Hyponatraemia [Recovered/Resolved]
  - Lacunar infarction [Recovered/Resolved]
  - Cerebrovascular accident [Recovered/Resolved]
  - Encephalopathy [Recovered/Resolved]

NARRATIVE: CASE EVENT DATE: 20150105
